FAERS Safety Report 10469497 (Version 1)
Quarter: 2014Q3

REPORT INFORMATION
  Report Type: Spontaneous
  Country: US (occurrence: None)
  Receive Date: 20140922
  Receipt Date: 20140922
  Transmission Date: 20150326
  Serious: Yes (Other)
  Sender: FDA-Public Use
  Company Number: None

PATIENT
  Age: 82 Year
  Sex: Male

DRUGS (1)
  1. FENTANYL TRANSDERMAL SYSTEM [Suspect]
     Active Substance: FENTANYL
     Indication: ANALGESIC THERAPY
     Route: 062
     Dates: start: 20140918, end: 20140920

REACTIONS (3)
  - Product adhesion issue [None]
  - Inadequate analgesia [None]
  - No reaction on previous exposure to drug [None]

NARRATIVE: CASE EVENT DATE: 20140918
